FAERS Safety Report 19546409 (Version 3)
Quarter: 2021Q3

REPORT INFORMATION
  Report Type: Spontaneous
  Country: US (occurrence: US)
  Receive Date: 20210713
  Receipt Date: 20210804
  Transmission Date: 20211014
  Serious: No
  Sender: FDA-Public Use
  Company Number: US-JNJFOC-20210712976

PATIENT
  Age: 39 Year
  Sex: Female

DRUGS (4)
  1. ZOLOFT [Concomitant]
     Active Substance: SERTRALINE HYDROCHLORIDE
     Indication: PRODUCT USED FOR UNKNOWN INDICATION
  2. TREMFYA [Suspect]
     Active Substance: GUSELKUMAB
     Indication: PSORIATIC ARTHROPATHY
     Route: 065
  3. NORVASC [Concomitant]
     Active Substance: AMLODIPINE BESYLATE
  4. WELLBUTRIN [Concomitant]
     Active Substance: BUPROPION HYDROCHLORIDE
     Indication: PRODUCT USED FOR UNKNOWN INDICATION

REACTIONS (3)
  - Device issue [Unknown]
  - Product dose omission issue [Unknown]
  - Device use issue [Unknown]

NARRATIVE: CASE EVENT DATE: 20210706
